FAERS Safety Report 6067155-7 (Version None)
Quarter: 2009Q1

REPORT INFORMATION
  Report Type: 
  Country: None (occurrence: None)
  Receive Date: 20090205
  Receipt Date: 20090130
  Transmission Date: 20090719
  Serious: Yes (Other)
  Sender: FDA-Public Use
  Company Number: US-BAYER-200910331BCC

PATIENT
  Age: 86 Year
  Sex: Male
  Weight: 73 kg

DRUGS (1)
  1. ASPIRIN [Suspect]
     Indication: ARTHRALGIA
     Dates: start: 20080101

REACTIONS (5)
  - ABDOMINAL PAIN [None]
  - FAECES DISCOLOURED [None]
  - GASTRIC HAEMORRHAGE [None]
  - HAEMATEMESIS [None]
  - HAEMORRHAGE [None]
